FAERS Safety Report 16638799 (Version 2)
Quarter: 2019Q3

REPORT INFORMATION
  Report Type: Spontaneous
  Country: US (occurrence: US)
  Receive Date: 20190726
  Receipt Date: 20190923
  Transmission Date: 20191004
  Serious: Yes (Other)
  Sender: FDA-Public Use
  Company Number: US-SA-2019SA202932

PATIENT
  Sex: Male

DRUGS (1)
  1. THYROGEN [Suspect]
     Active Substance: THYROTROPIN ALFA
     Dosage: UNK, UNK
     Route: 030

REACTIONS (4)
  - Respiratory distress [Unknown]
  - Urticaria [Unknown]
  - Off label use [Unknown]
  - Arthropod sting [Unknown]
